FAERS Safety Report 9062804 (Version 2)
Quarter: 2013Q3

REPORT INFORMATION
  Report Type: Spontaneous
  Country: JP (occurrence: JP)
  Receive Date: 20130213
  Receipt Date: 20130819
  Transmission Date: 20140515
  Serious: Yes (Hospitalization, Other)
  Sender: FDA-Public Use
  Company Number: JP-BRISTOL-MYERS SQUIBB COMPANY-17184482

PATIENT
  Age: 68 Year
  Sex: Male
  Weight: 46.9 kg

DRUGS (7)
  1. ORENCIA FOR INJ 250 MG/VIAL [Suspect]
     Indication: RHEUMATOID ARTHRITIS
     Dosage: 500MG
     Route: 041
     Dates: start: 20121002, end: 20121030
  2. RHEUMATREX [Suspect]
     Indication: RHEUMATOID ARTHRITIS
     Route: 048
     Dates: end: 20121127
  3. PREDNISOLONE [Concomitant]
     Indication: RHEUMATOID ARTHRITIS
  4. AMLODIPINE [Concomitant]
     Indication: HYPERTENSION
     Route: 048
  5. AMARYL [Concomitant]
     Indication: DIABETES MELLITUS
  6. MICARDIS [Concomitant]
     Indication: HYPERTENSION
     Route: 048
  7. TAKEPRON [Concomitant]
     Indication: GASTROOESOPHAGEAL REFLUX DISEASE

REACTIONS (2)
  - Interstitial lung disease [Recovered/Resolved]
  - Acute myeloid leukaemia [Unknown]
